FAERS Safety Report 17610996 (Version 5)
Quarter: 2021Q2

REPORT INFORMATION
  Report Type: Report from Study
  Country: BE (occurrence: BE)
  Receive Date: 20200401
  Receipt Date: 20210527
  Transmission Date: 20210716
  Serious: Yes (Other)
  Sender: FDA-Public Use
  Company Number: BE-BRISTOL-MYERS SQUIBB COMPANY-BMS-2020-002752

PATIENT
  Age: 49 Year
  Sex: Male

DRUGS (1)
  1. NIVOLUMAB [Suspect]
     Active Substance: NIVOLUMAB
     Indication: MALIGNANT MELANOMA
     Dosage: 240 MILLIGRAM
     Route: 042
     Dates: start: 20191202, end: 20191230

REACTIONS (4)
  - Hypothyroidism [Recovering/Resolving]
  - Hyperthyroidism [Recovered/Resolved with Sequelae]
  - Dry mouth [Recovered/Resolved]
  - Xerophthalmia [Recovered/Resolved]

NARRATIVE: CASE EVENT DATE: 20191220
